FAERS Safety Report 13471825 (Version 2)
Quarter: 2017Q3

REPORT INFORMATION
  Report Type: Spontaneous
  Country: US (occurrence: US)
  Receive Date: 20170424
  Receipt Date: 20170823
  Transmission Date: 20171127
  Serious: No
  Sender: FDA-Public Use
  Company Number: US-PFIZER INC-2017176352

PATIENT

DRUGS (2)
  1. ADVIL [Suspect]
     Active Substance: IBUPROFEN
     Indication: ENDOMETRIOSIS
     Dosage: 800 MG, UNK
  2. ADVIL [Suspect]
     Active Substance: IBUPROFEN
     Indication: POLYCYSTIC OVARIES

REACTIONS (2)
  - Intentional product misuse [Unknown]
  - Drug ineffective [Unknown]
